FAERS Safety Report 12383164 (Version 1)
Quarter: 2016Q2

REPORT INFORMATION
  Report Type: Spontaneous
  Country: US (occurrence: US)
  Receive Date: 20160518
  Receipt Date: 20160518
  Transmission Date: 20160815
  Serious: Yes (Other)
  Sender: FDA-Public Use
  Company Number: US-PFIZER INC-2016254174

PATIENT
  Age: 61 Year
  Sex: Female

DRUGS (6)
  1. CEFALEXIN [Suspect]
     Active Substance: CEPHALEXIN
  2. CODEINE [Suspect]
     Active Substance: CODEINE
  3. IODINE. [Suspect]
     Active Substance: IODINE
  4. MORPHINE SULFATE. [Suspect]
     Active Substance: MORPHINE SULFATE
     Dosage: UNK
  5. IBUPROFEN. [Suspect]
     Active Substance: IBUPROFEN
     Dosage: UNK
  6. ASPIRIN. [Suspect]
     Active Substance: ASPIRIN

REACTIONS (1)
  - Anaphylactic reaction [Unknown]
